FAERS Safety Report 10221742 (Version 1)
Quarter: 2014Q2

REPORT INFORMATION
  Report Type: Spontaneous
  Country: GB (occurrence: GB)
  Receive Date: 20140606
  Receipt Date: 20140606
  Transmission Date: 20141212
  Serious: Yes (Other)
  Sender: FDA-Public Use
  Company Number: GB-GLAXOSMITHKLINE-A1076001A

PATIENT
  Age: 61 Year
  Sex: Male

DRUGS (1)
  1. OFATUMUMAB [Suspect]
     Indication: PRODUCT USED FOR UNKNOWN INDICATION
     Route: 065
     Dates: start: 201004, end: 201006

REACTIONS (2)
  - Graft versus host disease [Unknown]
  - Stem cell transplant [Unknown]
